FAERS Safety Report 6736587-3 (Version None)
Quarter: 2010Q2

REPORT INFORMATION
  Report Type: 
  Country: None (occurrence: None)
  Receive Date: 20100521
  Receipt Date: 20100512
  Transmission Date: 20101027
  Serious: No
  Sender: FDA-Public Use
  Company Number: B0652948A

PATIENT
  Age: 6 Year
  Sex: Female

DRUGS (2)
  1. RELENZA [Suspect]
     Indication: INFLUENZA
     Dosage: 20MG PER DAY
     Route: 055
     Dates: start: 20100510, end: 20100510
  2. RELENZA [Suspect]
     Dosage: 30MG PER DAY
     Route: 055
     Dates: start: 20100511, end: 20100511

REACTIONS (2)
  - MYALGIA [None]
  - OVERDOSE [None]
